FAERS Safety Report 5161416-1 (Version None)
Quarter: 2006Q4

REPORT INFORMATION
  Report Type: 
  Country: None (occurrence: None)
  Receive Date: 20061130
  Receipt Date: 20060801
  Transmission Date: 20070319
  Serious: No
  Sender: FDA-Public Use
  Company Number: US-GLAXOSMITHKLINE-A0614447A

PATIENT
  Age: 60 Year
  Sex: Male

DRUGS (5)
  1. WELLBUTRIN XL [Suspect]
     Indication: DEPRESSION
     Dosage: 300MG PER DAY
     Route: 048
  2. ASPIRIN [Concomitant]
  3. M.V.I. [Concomitant]
  4. GLUCOSAMINE [Concomitant]
  5. PROZAC [Concomitant]

REACTIONS (1)
  - TINNITUS [None]
